FAERS Safety Report 7298622-6 (Version None)
Quarter: 2011Q1

REPORT INFORMATION
  Report Type: 
  Country: None (occurrence: None)
  Receive Date: 20110217
  Receipt Date: 20110215
  Transmission Date: 20110831
  Serious: Yes (Death, Life-Threatening, Hospitalization)
  Sender: FDA-Public Use
  Company Number: PHHO2010GB05189

PATIENT
  Sex: Female
  Weight: 87.2 kg

DRUGS (1)
  1. LETROZOLE [Suspect]
     Indication: BREAST CANCER
     Dosage: 2.5 MG, QD
     Route: 048
     Dates: start: 20070711, end: 20100331

REACTIONS (9)
  - METASTASES TO BONE [None]
  - DYSPNOEA [None]
  - FATIGUE [None]
  - PANCYTOPENIA [None]
  - ANAEMIA [None]
  - HIATUS HERNIA [None]
  - PALPITATIONS [None]
  - METASTASES TO LIVER [None]
  - BREAST CANCER [None]
